FAERS Safety Report 18780581 (Version 1)
Quarter: 2021Q1

REPORT INFORMATION
  Report Type: Spontaneous
  Country: US (occurrence: US)
  Receive Date: 20210122
  Receipt Date: 20210122
  Transmission Date: 20210419
  Serious: Yes (Hospitalization)
  Sender: FDA-Public Use
  Company Number: None

PATIENT
  Age: 38 Year
  Sex: Male
  Weight: 161 kg

DRUGS (1)
  1. BAMLANIVIMAB. [Suspect]
     Active Substance: BAMLANIVIMAB
     Indication: COVID-19
     Dates: start: 20210119

REACTIONS (4)
  - Dyspnoea [None]
  - Diarrhoea [None]
  - Oxygen saturation decreased [None]
  - Hypoxia [None]

NARRATIVE: CASE EVENT DATE: 20210119
